FAERS Safety Report 24885676 (Version 3)
Quarter: 2025Q1

REPORT INFORMATION
  Report Type: Spontaneous
  Country: US (occurrence: US)
  Receive Date: 20250125
  Receipt Date: 20250227
  Transmission Date: 20250409
  Serious: No
  Sender: QUAGEN PHARMACEUTICALS
  Company Number: US-QUAGEN-2025QUASPO00115

PATIENT
  Age: 3 Year
  Sex: Male
  Weight: 30 kg

DRUGS (4)
  1. CYPROHEPTADINE HYDROCHLORIDE [Suspect]
     Active Substance: CYPROHEPTADINE HYDROCHLORIDE
     Indication: Food aversion
     Route: 048
     Dates: start: 2024, end: 2024
  2. CYPROHEPTADINE HYDROCHLORIDE [Suspect]
     Active Substance: CYPROHEPTADINE HYDROCHLORIDE
     Indication: Increased appetite
  3. Nanovm1 to 3 Years [Concomitant]
     Route: 065
  4. Nanovm1 to 3 Years [Concomitant]

REACTIONS (4)
  - Burning sensation [Recovered/Resolved]
  - Crying [Recovered/Resolved]
  - Irritability [Recovered/Resolved]
  - Product use in unapproved indication [Unknown]

NARRATIVE: CASE EVENT DATE: 20240101
